FAERS Safety Report 19663063 (Version 1)
Quarter: 2021Q3

REPORT INFORMATION
  Report Type: Spontaneous
  Country: US (occurrence: US)
  Receive Date: 20210805
  Receipt Date: 20210805
  Transmission Date: 20211014
  Serious: No
  Sender: FDA-Public Use
  Company Number: US-B.I. PHARMACEUTICALS,INC./RIDGEFIELD-2021-BI-119780

PATIENT
  Age: 66 Year
  Sex: Male

DRUGS (6)
  1. JARDIANCE [Suspect]
     Active Substance: EMPAGLIFLOZIN
  2. JARDIANCE [Suspect]
     Active Substance: EMPAGLIFLOZIN
     Indication: DIABETES MELLITUS
     Dosage: UNKNOWN
     Route: 058
  3. INSULIN LISPRO [Suspect]
     Active Substance: INSULIN LISPRO
     Indication: DIABETES MELLITUS
     Dosage: 100 U/ML DAILY; 4 UNITS AT BREAKFAST, 4 UNITS AT LUNCH AND 3 UNITS AT NIGHT TAKING A TOTAL OF ABOUT
     Route: 058
  4. TRULICITY [Suspect]
     Active Substance: DULAGLUTIDE
  5. TRULICITY [Suspect]
     Active Substance: DULAGLUTIDE
     Indication: DIABETES MELLITUS
     Dosage: 0.75 MG WEEKLY
     Route: 058
     Dates: end: 202007
  6. INSULIN LISPRO [Suspect]
     Active Substance: INSULIN LISPRO

REACTIONS (6)
  - Disturbance in attention [Not Recovered/Not Resolved]
  - Blood glucose increased [Not Recovered/Not Resolved]
  - Glycosuria [Unknown]
  - Expired product administered [Unknown]
  - Glycosylated haemoglobin increased [Recovering/Resolving]
  - Fungal infection [Unknown]
